FAERS Safety Report 4397304-8 (Version None)
Quarter: 2004Q2

REPORT INFORMATION
  Report Type: 
  Country: None (occurrence: None)
  Receive Date: 20040621
  Receipt Date: 20040219
  Transmission Date: 20050107
  Serious: Yes (Hospitalization, Other)
  Sender: FDA-Public Use
  Company Number: USA-2004-0013224

PATIENT
  Age: 20 Year
  Sex: Female

DRUGS (5)
  1. OXYCONTIN [Suspect]
     Indication: PAIN
     Dosage: 40 MG, TID
     Dates: start: 20010101
  2. AMBIEN [Concomitant]
  3. LORTAB [Concomitant]
  4. VALIUM [Concomitant]
  5. RITALIN [Concomitant]

REACTIONS (3)
  - CONFUSIONAL STATE [None]
  - DRUG DEPENDENCE [None]
  - MEMORY IMPAIRMENT [None]
